FAERS Safety Report 16809286 (Version 1)
Quarter: 2019Q4

REPORT INFORMATION
  Report Type: Spontaneous
  Country: US (occurrence: US)
  Receive Date: 20190915
  Receipt Date: 20190915
  Transmission Date: 20200122
  Serious: Yes (Death)
  Sender: FDA-Public Use
  Company Number: None

PATIENT
  Age: 83 Year
  Sex: Female
  Weight: 63 kg

DRUGS (4)
  1. FLUROSEMIDE [Concomitant]
  2. INSULINL [Concomitant]
  3. RISPERDONE [Suspect]
     Active Substance: RISPERIDONE
     Indication: DEMENTIA
     Dosage: ?          QUANTITY:4 TABLET(S);?
     Route: 060
     Dates: start: 20190813, end: 20190818
  4. PREVIS [Concomitant]

REACTIONS (9)
  - Cardiac arrest [None]
  - Feeding disorder [None]
  - Hypertension [None]
  - Product use in unapproved indication [None]
  - Seizure [None]
  - Product prescribing issue [None]
  - Agitation [None]
  - Blood glucose increased [None]
  - Asthenia [None]

NARRATIVE: CASE EVENT DATE: 20190813
